FAERS Safety Report 23211309 (Version 1)
Quarter: 2023Q4

REPORT INFORMATION
  Report Type: Spontaneous
  Country: CN (occurrence: CN)
  Receive Date: 20231121
  Receipt Date: 20231121
  Transmission Date: 20240110
  Serious: Yes (Hospitalization)
  Sender: FDA-Public Use
  Company Number: CN-MYLANLABS-2023M1122793

PATIENT
  Age: 13 Year
  Sex: Male
  Weight: 50 kg

DRUGS (3)
  1. SERTRALINE [Suspect]
     Active Substance: SERTRALINE HYDROCHLORIDE
     Indication: Depression
     Dosage: 2.8 GRAM, QD
     Route: 048
  2. RISPERIDONE [Suspect]
     Active Substance: RISPERIDONE
     Indication: Depression
     Dosage: 60 MILLIGRAM, QD
     Route: 048
  3. FLUVOXAMINE MALEATE [Suspect]
     Active Substance: FLUVOXAMINE MALEATE
     Indication: Depression
     Dosage: 4.5 GRAM, QD
     Route: 048

REACTIONS (18)
  - Overdose [Unknown]
  - Serotonin syndrome [Recovering/Resolving]
  - Abdominal pain [Recovering/Resolving]
  - Vomiting [Recovered/Resolved]
  - Dizziness [Recovered/Resolved]
  - Dysstasia [Recovering/Resolving]
  - Aphasia [Recovering/Resolving]
  - Blood pressure decreased [Recovered/Resolved]
  - Myocardial necrosis marker increased [Recovering/Resolving]
  - Seizure [Recovered/Resolved]
  - Tremor [Recovering/Resolving]
  - Respiratory failure [Recovering/Resolving]
  - Shock [Recovering/Resolving]
  - Cardiac failure [Recovering/Resolving]
  - Nervous system disorder [Recovering/Resolving]
  - Respiratory disorder [Recovering/Resolving]
  - Cardiovascular insufficiency [Recovering/Resolving]
  - Toxicity to various agents [Recovering/Resolving]
